FAERS Safety Report 16674783 (Version 2)
Quarter: 2019Q4

REPORT INFORMATION
  Report Type: Spontaneous
  Country: US (occurrence: US)
  Receive Date: 20190806
  Receipt Date: 20191104
  Transmission Date: 20200122
  Serious: No
  Sender: FDA-Public Use
  Company Number: US-SA-2019SA204368

PATIENT
  Age: 55 Year
  Sex: Female

DRUGS (1)
  1. DUPIXENT [Suspect]
     Active Substance: DUPILUMAB
     Indication: ASTHMA
     Dosage: UNK, QOW
     Route: 058
     Dates: start: 201903

REACTIONS (4)
  - Asthma [Unknown]
  - Pain in extremity [Unknown]
  - Weight decreased [Unknown]
  - Dyspnoea [Recovered/Resolved]
